FAERS Safety Report 7131677-8 (Version None)
Quarter: 2010Q4

REPORT INFORMATION
  Report Type: 
  Country: None (occurrence: None)
  Receive Date: 20101201
  Receipt Date: 20101122
  Transmission Date: 20110411
  Serious: Yes (Hospitalization)
  Sender: FDA-Public Use
  Company Number: CG-MERCK-1011USA03255

PATIENT
  Age: 30 Year
  Sex: Male
  Weight: 45 kg

DRUGS (1)
  1. STROMECTOL [Suspect]
     Indication: ONCHOCERCIASIS
     Route: 048
     Dates: start: 20101026, end: 20101026

REACTIONS (5)
  - DIPLEGIA [None]
  - FAECAL INCONTINENCE [None]
  - HEADACHE [None]
  - PYREXIA [None]
  - URINARY INCONTINENCE [None]
